FAERS Safety Report 12626330 (Version 1)
Quarter: 2016Q3

REPORT INFORMATION
  Report Type: Spontaneous
  Country: US (occurrence: US)
  Receive Date: 20160805
  Receipt Date: 20160805
  Transmission Date: 20161109
  Serious: No
  Sender: FDA-Public Use
  Company Number: US-PERRIGO-15US013609

PATIENT
  Age: 76 Year
  Sex: Male
  Weight: 76.19 kg

DRUGS (1)
  1. IBUPROFEN. [Suspect]
     Active Substance: IBUPROFEN
     Indication: ARTHRITIS
     Dosage: 200 TO 400 MG, TID
     Route: 048
     Dates: start: 201512, end: 201512

REACTIONS (3)
  - Muscle spasms [Recovered/Resolved]
  - Pruritus generalised [Recovered/Resolved]
  - Skin irritation [Recovered/Resolved]

NARRATIVE: CASE EVENT DATE: 201512
